FAERS Safety Report 9837762 (Version 1)
Quarter: 2013Q4

REPORT INFORMATION
  Report Type: Spontaneous
  Country: US (occurrence: None)
  Receive Date: 20131205
  Receipt Date: 20131205
  Transmission Date: 20140711
  Serious: No
  Sender: FDA-Public Use
  Company Number: 163-POMAL-13082918

PATIENT
  Age: 62 Year
  Sex: Female
  Weight: 54.4 kg

DRUGS (10)
  1. POMALYST (POMALIDOMIDE) (4 MILLIGRAM, CAPSULES) [Suspect]
     Indication: PLASMA CELL MYELOMA
     Dosage: 21 IN 28 D
     Route: 048
     Dates: start: 20130619
  2. FOLBIC (HEPAGRISEVIT FORTE-N TABLET) [Concomitant]
  3. DEXAMETHASONE [Concomitant]
  4. PAMIDRONATE (PAMIDRONATE DISODIUM) [Concomitant]
  5. FLUOXETINE [Concomitant]
  6. ACYCLOVIR [Concomitant]
  7. ASPIRIN (ACETYLSALICYLIC ACID) [Concomitant]
  8. MULTIVITAMINS [Concomitant]
  9. VITAMIN D3 (COLECALCIFEROL) [Concomitant]
  10. CITRACAL + BONE DENSITY (CITRACAL BONE DENSITY BUILDER) [Concomitant]

REACTIONS (4)
  - Ear discomfort [None]
  - Neuropathy peripheral [None]
  - Dizziness [None]
  - Tremor [None]
